FAERS Safety Report 24769967 (Version 1)
Quarter: 2024Q4

REPORT INFORMATION
  Report Type: Spontaneous
  Country: CN (occurrence: CN)
  Receive Date: 20241224
  Receipt Date: 20241224
  Transmission Date: 20250115
  Serious: Yes (Hospitalization)
  Sender: NOVITIUM PHARMA
  Company Number: CN-NOVITIUMPHARMA-2024CNNVP02946

PATIENT
  Age: 69 Year
  Sex: Male

DRUGS (6)
  1. PREDNISONE [Suspect]
     Active Substance: PREDNISONE
     Indication: Tubulointerstitial nephritis
  2. PREDNISONE [Suspect]
     Active Substance: PREDNISONE
  3. METHYLPREDNISOLONE [Concomitant]
     Active Substance: METHYLPREDNISOLONE
     Indication: Tubulointerstitial nephritis
  4. HYDROXYCHLOROQUINE [Concomitant]
     Active Substance: HYDROXYCHLOROQUINE
     Indication: Systemic lupus erythematosus
  5. MYCOPHENOLATE MOFETIL [Concomitant]
     Active Substance: MYCOPHENOLATE MOFETIL
     Indication: Systemic lupus erythematosus
     Route: 048
  6. FELODIPINE [Concomitant]
     Active Substance: FELODIPINE
     Indication: Hypertension

REACTIONS (1)
  - Treatment noncompliance [Unknown]
